FAERS Safety Report 11813249 (Version 1)
Quarter: 2015Q4

REPORT INFORMATION
  Report Type: Report from Study
  Country: US (occurrence: US)
  Receive Date: 20151209
  Receipt Date: 20151209
  Transmission Date: 20160305
  Serious: Yes (Death, Other)
  Sender: FDA-Public Use
  Company Number: US-AMGEN-USASL2015130267

PATIENT
  Age: 25 Year
  Sex: Male

DRUGS (2)
  1. NEULASTA [Suspect]
     Active Substance: PEGFILGRASTIM
     Indication: CYCLIC NEUTROPENIA
     Dosage: UNK UNK, UNK
     Route: 065
     Dates: start: 2014
  2. NEUPOGEN [Suspect]
     Active Substance: FILGRASTIM
     Indication: CYCLIC NEUTROPENIA
     Dosage: 2 TO 11.5 MCG/KG/DAY
     Route: 065
     Dates: end: 2014

REACTIONS (4)
  - Graft versus host disease [Unknown]
  - Acute myeloid leukaemia [Unknown]
  - Bone marrow transplant [Fatal]
  - Off label use [Unknown]

NARRATIVE: CASE EVENT DATE: 2015
